FAERS Safety Report 17335600 (Version 3)
Quarter: 2020Q2

REPORT INFORMATION
  Report Type: Report from Study
  Country: US (occurrence: US)
  Receive Date: 20200128
  Receipt Date: 20200407
  Transmission Date: 20200713
  Serious: Yes (Death, Hospitalization, Other)
  Sender: FDA-Public Use
  Company Number: US-BRISTOL-MYERS SQUIBB COMPANY-BMS-2020-001143

PATIENT
  Age: 66 Year
  Sex: Male
  Weight: 74.6 kg

DRUGS (2)
  1. IPILIMUMAB [Suspect]
     Active Substance: IPILIMUMAB
     Indication: RENAL CELL CARCINOMA
     Dosage: 79.7 MG IN 50 ML NS INFUSED
     Route: 065
     Dates: start: 20191213, end: 20200115
  2. NIVOLUMAB [Suspect]
     Active Substance: NIVOLUMAB
     Indication: RENAL CELL CARCINOMA
     Dosage: 239MG IN 100ML NS INFUSED
     Route: 065
     Dates: start: 20191213, end: 20200115

REACTIONS (6)
  - Pain [Unknown]
  - Muscular weakness [Unknown]
  - Hypercalcaemia [Recovering/Resolving]
  - Wound dehiscence [Recovering/Resolving]
  - Postoperative wound infection [Recovering/Resolving]
  - Malignant neoplasm progression [Fatal]

NARRATIVE: CASE EVENT DATE: 20191217
